FAERS Safety Report 8242863-8 (Version None)
Quarter: 2012Q1

REPORT INFORMATION
  Report Type: 
  Country: None (occurrence: None)
  Receive Date: 20120329
  Receipt Date: 20120319
  Transmission Date: 20120608
  Serious: Yes (Other)
  Sender: FDA-Public Use
  Company Number: JP-JNJFOC-20120210942

PATIENT
  Sex: Female
  Weight: 54 kg

DRUGS (18)
  1. RISPERDAL [Suspect]
     Route: 048
     Dates: start: 20111003, end: 20111023
  2. NELUROLEN [Concomitant]
     Indication: SCHIZOPHRENIA, DISORGANISED TYPE
     Route: 048
  3. RISPERDAL [Suspect]
     Route: 048
     Dates: end: 20110925
  4. RISPERDAL [Suspect]
     Route: 048
     Dates: start: 20111024, end: 20111127
  5. GASMOTIN [Concomitant]
     Indication: GASTRITIS
     Route: 048
  6. KONSUBEN [Concomitant]
     Indication: CONSTIPATION
     Route: 048
  7. INVEGA [Suspect]
     Indication: SCHIZOPHRENIA, DISORGANISED TYPE
     Route: 048
     Dates: start: 20111017
  8. MAGMITT [Concomitant]
     Indication: CONSTIPATION
     Route: 048
  9. FLUNITRAZEPAM [Concomitant]
     Indication: SCHIZOPHRENIA, DISORGANISED TYPE
     Route: 048
  10. RISPERDAL [Suspect]
     Indication: SCHIZOPHRENIA, DISORGANISED TYPE
     Route: 048
     Dates: start: 20110926, end: 20110929
  11. RISPERDAL [Suspect]
     Route: 048
     Dates: start: 20110930, end: 20111002
  12. SORENTMIN [Concomitant]
     Indication: SCHIZOPHRENIA, DISORGANISED TYPE
     Route: 048
  13. PURSENNID [Concomitant]
     Indication: CONSTIPATION
     Route: 048
  14. INVEGA [Suspect]
     Route: 048
     Dates: start: 20110925, end: 20111016
  15. RISPERDAL [Suspect]
     Route: 048
     Dates: start: 20111128, end: 20111205
  16. REBAMIPIDE [Concomitant]
     Indication: GASTRITIS
     Route: 048
  17. DEPAKENE [Concomitant]
     Indication: SCHIZOPHRENIA, DISORGANISED TYPE
     Route: 048
  18. TRIHEXYPHENIDYL HCL [Concomitant]
     Indication: PARKINSONISM
     Route: 048

REACTIONS (3)
  - PARKINSONISM [None]
  - INSOMNIA [None]
  - DYSURIA [None]
